FAERS Safety Report 11839936 (Version 1)
Quarter: 2015Q4

REPORT INFORMATION
  Report Type: Spontaneous
  Country: US (occurrence: US)
  Receive Date: 20151216
  Receipt Date: 20151216
  Transmission Date: 20160305
  Serious: Yes (Hospitalization, Other)
  Sender: FDA-Public Use
  Company Number: US-ACTAVIS-2015-27020

PATIENT

DRUGS (1)
  1. DICLOFENAC POTASSIUM. [Suspect]
     Active Substance: DICLOFENAC POTASSIUM
     Indication: PRODUCT USED FOR UNKNOWN INDICATION
     Dosage: UNK, UNKNOWN
     Route: 065

REACTIONS (8)
  - Dizziness [Unknown]
  - Renal disorder [Unknown]
  - Nausea [Unknown]
  - Malaise [Unknown]
  - Kidney infection [Unknown]
  - Blood pressure fluctuation [Unknown]
  - Syncope [Unknown]
  - Vomiting [Unknown]
